FAERS Safety Report 7046951-3 (Version None)
Quarter: 2010Q4

REPORT INFORMATION
  Report Type: 
  Country: None (occurrence: None)
  Receive Date: 20101015
  Receipt Date: 20101012
  Transmission Date: 20110411
  Serious: Yes (Hospitalization)
  Sender: FDA-Public Use
  Company Number: GB-WYE-G06806210

PATIENT
  Age: 63 Year
  Sex: Male

DRUGS (6)
  1. TAZOCIN [Suspect]
     Indication: INFECTION
     Route: 042
     Dates: start: 20100924, end: 20100924
  2. TAZOCIN [Suspect]
     Indication: HERPES ZOSTER
  3. SENNA [Concomitant]
     Indication: CONSTIPATION
     Dosage: 2 DOSES, FREQUENCY UNKNOWN
     Route: 048
  4. NOVOMIX [Concomitant]
     Indication: DIABETES MELLITUS
     Dosage: 34 IU, FREQUENCY UNKNOWN
     Route: 058
  5. AMLODIPINE [Concomitant]
     Indication: HYPERTENSION
     Route: 048
  6. SULFAMETHOXAZOLE AND TRIMETHOPRIM [Concomitant]
     Indication: PNEUMONIA
     Route: 048

REACTIONS (5)
  - DYSPNOEA [None]
  - HYPERHIDROSIS [None]
  - NAUSEA [None]
  - PALPITATIONS [None]
  - THROAT IRRITATION [None]
